FAERS Safety Report 14147563 (Version 4)
Quarter: 2018Q1

REPORT INFORMATION
  Report Type: Report from Study
  Country: US (occurrence: US)
  Receive Date: 20171101
  Receipt Date: 20180120
  Transmission Date: 20180508
  Serious: No
  Sender: FDA-Public Use
  Company Number: PHEH2017US035128

PATIENT
  Sex: Female

DRUGS (1)
  1. GILENYA [Suspect]
     Active Substance: FINGOLIMOD HYDROCHLORIDE
     Indication: MULTIPLE SCLEROSIS
     Dosage: 0.5 MG, QD
     Route: 048
     Dates: start: 20170509, end: 20171206

REACTIONS (10)
  - Asthenia [Unknown]
  - Fatigue [Not Recovered/Not Resolved]
  - Chest pain [Recovering/Resolving]
  - Heart rate increased [Recovered/Resolved]
  - Cough [Unknown]
  - Back pain [Unknown]
  - Nausea [Not Recovered/Not Resolved]
  - Dizziness [Recovered/Resolved]
  - Abdominal discomfort [Not Recovered/Not Resolved]
  - Dyspnoea [Unknown]
